FAERS Safety Report 17726800 (Version 1)
Quarter: 2020Q2

REPORT INFORMATION
  Report Type: Spontaneous
  Country: US (occurrence: US)
  Receive Date: 20200430
  Receipt Date: 20200430
  Transmission Date: 20200714
  Serious: No
  Sender: FDA-Public Use
  Company Number: US-EMMAUS MEDICAL, INC.-EMM202003-000145

PATIENT
  Age: 42 Year
  Sex: Female

DRUGS (2)
  1. ENDARI [Suspect]
     Active Substance: GLUTAMINE
     Indication: SICKLE CELL DISEASE
     Route: 048
     Dates: start: 20180424
  2. OXBRYTA [Concomitant]
     Active Substance: VOXELOTOR
     Indication: SICKLE CELL DISEASE

REACTIONS (2)
  - Drug interaction [Recovering/Resolving]
  - Diarrhoea [Recovering/Resolving]

NARRATIVE: CASE EVENT DATE: 20200201
